FAERS Safety Report 13585365 (Version 1)
Quarter: 2017Q2

REPORT INFORMATION
  Report Type: Spontaneous
  Country: JP (occurrence: JP)
  Receive Date: 20170526
  Receipt Date: 20170526
  Transmission Date: 20170830
  Serious: Yes (Other)
  Sender: FDA-Public Use
  Company Number: JP-GLAXOSMITHKLINE-JP2017JPN075858

PATIENT
  Sex: Female

DRUGS (4)
  1. AMBROXOL HYDROCHLORIDE [Concomitant]
     Active Substance: AMBROXOL HYDROCHLORIDE
     Dosage: UNK
     Dates: end: 20170519
  2. MONTELUKAST SODIUM. [Concomitant]
     Active Substance: MONTELUKAST SODIUM
     Dosage: UNK
     Dates: end: 20170519
  3. RELVAR ELLIPTA [Suspect]
     Active Substance: FLUTICASONE FUROATE\VILANTEROL TRIFENATATE
     Indication: COUGH
     Dosage: UNK
     Route: 055
     Dates: start: 20170511, end: 20170519
  4. KAKKONTO [Concomitant]
     Active Substance: HERBALS
     Dosage: UNK
     Dates: end: 20170519

REACTIONS (4)
  - Product use in unapproved indication [Unknown]
  - Oral mucosal erythema [Unknown]
  - Tongue discomfort [Unknown]
  - Leukoplakia oral [Unknown]

NARRATIVE: CASE EVENT DATE: 201705
